FAERS Safety Report 7403758-2 (Version None)
Quarter: 2011Q2

REPORT INFORMATION
  Report Type: 
  Country: None (occurrence: None)
  Receive Date: 20110408
  Receipt Date: 20110329
  Transmission Date: 20111010
  Serious: Yes (Hospitalization)
  Sender: FDA-Public Use
  Company Number: US-ELI_LILLY_AND_COMPANY-US201104000398

PATIENT
  Sex: Female

DRUGS (3)
  1. PROLIXIN [Concomitant]
  2. ZYPREXA RELPREVV [Suspect]
     Dosage: 300 MG, 2/M
  3. ZYPREXA ZYDIS [Suspect]
     Dosage: 20 MG, QD

REACTIONS (2)
  - HALLUCINATION [None]
  - OVERDOSE [None]
